FAERS Safety Report 6582253-7 (Version None)
Quarter: 2010Q1

REPORT INFORMATION
  Report Type: 
  Country: None (occurrence: None)
  Receive Date: 20100212
  Receipt Date: 20100212
  Transmission Date: 20100710
  Serious: Yes (Hospitalization)
  Sender: FDA-Public Use
  Company Number: None

PATIENT
  Age: 80 Year
  Sex: Male
  Weight: 68.5 kg

DRUGS (2)
  1. TERAZOSIN HCL [Suspect]
     Indication: BENIGN PROSTATIC HYPERPLASIA
     Dosage: 10 MG AT BEDTIME PO
     Route: 048
     Dates: start: 20090702, end: 20091006
  2. TERAZOSIN HCL [Suspect]
     Indication: HYPERTENSION
     Dosage: 10 MG AT BEDTIME PO
     Route: 048
     Dates: start: 20090702, end: 20091006

REACTIONS (1)
  - HYPOTENSION [None]
